FAERS Safety Report 8624298-9 (Version None)
Quarter: 2012Q3

REPORT INFORMATION
  Report Type: 
  Country: None (occurrence: None)
  Receive Date: 20120824
  Receipt Date: 20120824
  Transmission Date: 20120928
  Serious: Yes (Other)
  Sender: FDA-Public Use
  Company Number: None

PATIENT
  Sex: Male
  Weight: 81.6475 kg

DRUGS (2)
  1. APAP/DOXYLAMINE/PHENYLEPHRINE 325/10/5 TOPCARE [Suspect]
     Indication: NASOPHARYNGITIS
     Dosage: 2 TABS AT DINNERTIME PO
     Route: 048
     Dates: start: 20120722, end: 20120722
  2. ZOLPIDEM [Suspect]
     Indication: INSOMNIA
     Dosage: 10MG AT BEDTIME PO
     Route: 048
     Dates: start: 20120722, end: 20120722

REACTIONS (4)
  - ANXIETY [None]
  - TREMOR [None]
  - INSOMNIA [None]
  - RESTLESSNESS [None]
